FAERS Safety Report 20608826 (Version 1)
Quarter: 2022Q1

REPORT INFORMATION
  Report Type: Spontaneous
  Country: GB (occurrence: GB)
  Receive Date: 20220317
  Receipt Date: 20220317
  Transmission Date: 20220423
  Serious: Yes (Other)
  Sender: FDA-Public Use
  Company Number: GB-MHRA-MED-202203011416353940-FNHT7

PATIENT

DRUGS (1)
  1. DINOPROSTONE [Suspect]
     Active Substance: DINOPROSTONE
     Indication: Labour induction
     Dosage: 10 MG, 2 TIMES DAILY
     Route: 064
     Dates: start: 20210924, end: 20210925

REACTIONS (2)
  - Hypoxic-ischaemic encephalopathy [Unknown]
  - Product monitoring error [Recovered/Resolved]

NARRATIVE: CASE EVENT DATE: 20210924
